FAERS Safety Report 14345597 (Version 1)
Quarter: 2017Q4

REPORT INFORMATION
  Report Type: Spontaneous
  Country: US (occurrence: US)
  Receive Date: 20171230
  Receipt Date: 20171230
  Transmission Date: 20180321
  Serious: No
  Sender: FDA-Public Use
  Company Number: None

PATIENT
  Age: 50 Year
  Sex: Male

DRUGS (1)
  1. ISENTRESS [Suspect]
     Active Substance: RALTEGRAVIR POTASSIUM

REACTIONS (2)
  - Drug dose omission [None]
  - Stress [None]

NARRATIVE: CASE EVENT DATE: 20121229
